FAERS Safety Report 15856989 (Version 1)
Quarter: 2019Q1

REPORT INFORMATION
  Report Type: Spontaneous
  Country: US (occurrence: US)
  Receive Date: 20190123
  Receipt Date: 20190123
  Transmission Date: 20190417
  Serious: Yes (Other)
  Sender: FDA-Public Use
  Company Number: US-ROCHE-2247922

PATIENT
  Sex: Female

DRUGS (2)
  1. XOLAIR [Suspect]
     Active Substance: OMALIZUMAB
     Indication: ASTHMA
  2. XOLAIR [Suspect]
     Active Substance: OMALIZUMAB
     Indication: IDIOPATHIC URTICARIA
     Dosage: LAST DOSE
     Route: 065
     Dates: end: 20190114

REACTIONS (4)
  - Major depression [Unknown]
  - Neuropathy peripheral [Unknown]
  - Anxiety [Unknown]
  - Hypersensitivity [Unknown]
